FAERS Safety Report 4486469-5 (Version None)
Quarter: 2004Q4

REPORT INFORMATION
  Report Type: 
  Country: None (occurrence: None)
  Receive Date: 20041026
  Receipt Date: 20041026
  Transmission Date: 20050328
  Serious: Yes (Hospitalization)
  Sender: FDA-Public Use
  Company Number: None

PATIENT
  Age: 28 Year
  Sex: Female

DRUGS (9)
  1. PURINETHOL [Suspect]
     Indication: ACUTE LYMPHOCYTIC LEUKAEMIA
  2. PURINETHOL [Suspect]
     Indication: LEUKAEMIA RECURRENT
  3. METHOTREXATE [Suspect]
  4. FLUCONAZOLE [Suspect]
  5. MERCAPTOPURINE [Concomitant]
  6. CORTICOSTEROIDS [Concomitant]
  7. NEURONTIN [Concomitant]
  8. NEUPOGEN [Concomitant]
  9. EPOGEN [Concomitant]

REACTIONS (9)
  - ASTHENIA [None]
  - BODY TEMPERATURE INCREASED [None]
  - FUNGAL INFECTION [None]
  - HAEMATOCRIT ABNORMAL [None]
  - HAEMOGLOBIN ABNORMAL [None]
  - NEUTROPENIA [None]
  - PLATELET DISORDER [None]
  - RED BLOOD CELL COUNT ABNORMAL [None]
  - WHITE BLOOD CELL DISORDER [None]
